FAERS Safety Report 12615506 (Version 1)
Quarter: 2016Q3

REPORT INFORMATION
  Report Type: Spontaneous
  Country: US (occurrence: US)
  Receive Date: 20160802
  Receipt Date: 20160802
  Transmission Date: 20161109
  Serious: No
  Sender: FDA-Public Use
  Company Number: US-009507513-1607USA007573

PATIENT
  Age: 64 Year
  Sex: Female

DRUGS (1)
  1. JANUMET [Suspect]
     Active Substance: METFORMIN HYDROCHLORIDE\SITAGLIPTIN PHOSPHATE
     Indication: TYPE 2 DIABETES MELLITUS
     Dosage: 50/1000MG , UNK
     Route: 048

REACTIONS (3)
  - Product solubility abnormal [Unknown]
  - Drug ineffective [Not Recovered/Not Resolved]
  - Medication residue present [Unknown]

NARRATIVE: CASE EVENT DATE: 20160716
